FAERS Safety Report 5678677-2 (Version None)
Quarter: 2008Q1

REPORT INFORMATION
  Report Type: 
  Country: None (occurrence: None)
  Receive Date: 20080321
  Receipt Date: 20080313
  Transmission Date: 20080703
  Serious: Yes (Hospitalization)
  Sender: FDA-Public Use
  Company Number: CERZ-1000134

PATIENT
  Age: 2 Year
  Sex: Male

DRUGS (1)
  1. CEREZYME [Suspect]
     Indication: GAUCHER'S DISEASE
     Dosage: 1200 U, Q2W, INTRAVENOUS
     Route: 042
     Dates: start: 20060301

REACTIONS (7)
  - CHILLS [None]
  - EPIGLOTTITIS [None]
  - LARYNGOSPASM [None]
  - NEUROLOGICAL SYMPTOM [None]
  - PYREXIA [None]
  - RESPIRATORY ARREST [None]
  - VIRAL INFECTION [None]
